FAERS Safety Report 20345849 (Version 1)
Quarter: 2022Q1

REPORT INFORMATION
  Report Type: Spontaneous
  Country: US (occurrence: US)
  Receive Date: 20220118
  Receipt Date: 20220118
  Transmission Date: 20220423
  Serious: No
  Sender: FDA-Public Use
  Company Number: US-BAYER-2022A006465

PATIENT
  Age: 87 Year
  Sex: Female

DRUGS (1)
  1. ALEVE BACK AND MUSCLE PAIN [Suspect]
     Active Substance: NAPROXEN SODIUM
     Indication: Pain
     Dosage: UNK UNK, QD (2 TABLETS YESTERDAY AND 1 TABLET TODAY)
     Route: 048
     Dates: start: 20220113, end: 20220114

REACTIONS (1)
  - Expired product administered [Unknown]
